FAERS Safety Report 23591038 (Version 1)
Quarter: 2024Q1

REPORT INFORMATION
  Report Type: Spontaneous
  Country: IT (occurrence: IT)
  Receive Date: 20240304
  Receipt Date: 20240304
  Transmission Date: 20240410
  Serious: Yes (Other)
  Sender: FDA-Public Use
  Company Number: None

PATIENT
  Age: 81 Year
  Sex: Female

DRUGS (7)
  1. EYLEA [Suspect]
     Active Substance: AFLIBERCEPT
     Indication: Neovascular age-related macular degeneration
     Dosage: 1 DF, ONCE, STRENGTH- 40MG/ML
     Route: 031
     Dates: start: 20220205, end: 20220205
  2. EYLEA [Suspect]
     Active Substance: AFLIBERCEPT
     Dosage: 1 DF, ONCE, STRENGTH- 40MG/ML
     Route: 031
     Dates: start: 20220516, end: 20220516
  3. EYLEA [Suspect]
     Active Substance: AFLIBERCEPT
     Dosage: 1 DF, ONCE, STRENGTH- 40MG/ML
     Route: 031
     Dates: start: 20220913, end: 20220913
  4. EYLEA [Suspect]
     Active Substance: AFLIBERCEPT
     Dosage: 1 DF, ONCE, STRENGTH- 40MG/ML
     Route: 031
     Dates: start: 20221219, end: 20221219
  5. EYLEA [Suspect]
     Active Substance: AFLIBERCEPT
     Dosage: 1 DF, ONCE, STRENGTH- 40MG/ML
     Route: 031
     Dates: start: 20230412, end: 20230412
  6. EYLEA [Suspect]
     Active Substance: AFLIBERCEPT
     Dosage: 1 DF, ONCE, STRENGTH- 40MG/ML
     Route: 031
     Dates: start: 20230710, end: 20230710
  7. EYLEA [Suspect]
     Active Substance: AFLIBERCEPT
     Dosage: 1 DF, ONCE, STRENGTH- 40MG/ML
     Route: 031
     Dates: start: 20231014, end: 20231014

REACTIONS (3)
  - Subretinal fluid [Not Recovered/Not Resolved]
  - Condition aggravated [Not Recovered/Not Resolved]
  - Therapeutic product effect decreased [Not Recovered/Not Resolved]

NARRATIVE: CASE EVENT DATE: 20240129
